FAERS Safety Report 10191973 (Version 1)
Quarter: 2014Q2

REPORT INFORMATION
  Report Type: Spontaneous
  Country: IT (occurrence: IT)
  Receive Date: 20140523
  Receipt Date: 20140523
  Transmission Date: 20141212
  Serious: Yes (Other)
  Sender: FDA-Public Use
  Company Number: IT-ACTAVIS-2014-10304

PATIENT
  Age: 49 Year
  Sex: Female

DRUGS (5)
  1. PACLITAXEL (UNKNOWN) [Suspect]
     Indication: BREAST NEOPLASM
     Dosage: 230 MG, CYCLICAL
     Route: 042
     Dates: start: 20131227, end: 20140415
  2. AVASTIN                            /00848101/ [Suspect]
     Indication: BREAST NEOPLASM
     Dosage: 800 MG, CYCLICAL
     Route: 042
     Dates: start: 20131227, end: 20140415
  3. NOVONORM [Concomitant]
     Indication: PRODUCT USED FOR UNKNOWN INDICATION
     Dosage: UNK
     Route: 065
  4. PARIET [Concomitant]
     Indication: PRODUCT USED FOR UNKNOWN INDICATION
     Dosage: UNK
     Route: 065
  5. METFORMIN [Concomitant]
     Indication: PRODUCT USED FOR UNKNOWN INDICATION
     Dosage: UNK
     Route: 065

REACTIONS (2)
  - Gamma-glutamyltransferase increased [Unknown]
  - Hypertransaminasaemia [Unknown]
